FAERS Safety Report 8385965 (Version 2)
Quarter: 2013Q2

REPORT INFORMATION
  Report Type: Report from Study
  Country: US (occurrence: US)
  Receive Date: 20120202
  Receipt Date: 20130506
  Transmission Date: 20140414
  Serious: Yes (Death, Hospitalization)
  Sender: FDA-Public Use
  Company Number: PHHO2011US020479

PATIENT
  Age: 79 Year
  Sex: Female
  Weight: 78.5 kg

DRUGS (1)
  1. AFINITOR [Suspect]
     Indication: METASTATIC RENAL CELL CARCINOMA
     Dosage: 10 MG, UNK
     Dates: start: 20100330, end: 20111203

REACTIONS (5)
  - Interstitial lung disease [Recovering/Resolving]
  - Hypoxia [Not Recovered/Not Resolved]
  - Renal cancer metastatic [Fatal]
  - Malignant neoplasm progression [Fatal]
  - Cardiac failure congestive [Not Recovered/Not Resolved]
